FAERS Safety Report 16348279 (Version 4)
Quarter: 2020Q3

REPORT INFORMATION
  Report Type: Report from Study
  Country: GB (occurrence: GB)
  Receive Date: 20190523
  Receipt Date: 20190916
  Transmission Date: 20201105
  Serious: Yes (Life-Threatening, Hospitalization)
  Sender: FDA-Public Use
  Company Number: GB-JNJFOC-20190523440

PATIENT
  Age: 69 Year
  Sex: Male
  Weight: 70 kg

DRUGS (1)
  1. IBRUTINIB [Suspect]
     Active Substance: IBRUTINIB
     Indication: CHRONIC LYMPHOCYTIC LEUKAEMIA
     Route: 048
     Dates: start: 20160321

REACTIONS (3)
  - Head injury [Not Recovered/Not Resolved]
  - Subarachnoid haemorrhage [Recovered/Resolved]
  - Acetabulum fracture [Not Recovered/Not Resolved]

NARRATIVE: CASE EVENT DATE: 20190512
